FAERS Safety Report 7383471-0 (Version None)
Quarter: 2011Q1

REPORT INFORMATION
  Report Type: 
  Country: None (occurrence: None)
  Receive Date: 20110330
  Receipt Date: 20110324
  Transmission Date: 20110831
  Serious: Yes (Other)
  Sender: FDA-Public Use
  Company Number: US-PFIZER INC-2011014295

PATIENT
  Sex: Female

DRUGS (4)
  1. RISPERIDONE [Concomitant]
     Indication: MENTAL DISORDER
     Dosage: UNK
     Dates: start: 20060301
  2. RISPERDAL [Concomitant]
     Indication: MENTAL DISORDER
     Dosage: UNK
     Dates: start: 20040501
  3. CHANTIX [Suspect]
     Indication: SMOKING CESSATION THERAPY
     Dosage: UNK
     Dates: start: 20071001, end: 20080101
  4. DEPAKOTE [Concomitant]
     Indication: MENTAL DISORDER
     Dosage: UNK
     Dates: start: 20040501

REACTIONS (7)
  - INJURY [None]
  - ANXIETY [None]
  - LOSS OF CONSCIOUSNESS [None]
  - MENTAL DISORDER [None]
  - DEPRESSION [None]
  - SUICIDE ATTEMPT [None]
  - DELUSION [None]
